FAERS Safety Report 9444263 (Version 1)
Quarter: 2013Q3

REPORT INFORMATION
  Report Type: Report from Study
  Country: AR (occurrence: AR)
  Receive Date: 20130807
  Receipt Date: 20130807
  Transmission Date: 20140515
  Serious: Yes (Other)
  Sender: FDA-Public Use
  Company Number: PHHY2013AR084442

PATIENT
  Sex: Male

DRUGS (2)
  1. EXELON PATCH [Suspect]
     Indication: DEMENTIA ALZHEIMER^S TYPE
     Dosage: 4.6 MG (PATCH 5 CM2), DAILY
     Route: 062
     Dates: start: 201307
  2. CLONAZEPAM [Concomitant]
     Indication: INSOMNIA
     Dosage: 0.5 UKN, UNK
     Route: 048

REACTIONS (3)
  - Animal bite [Recovering/Resolving]
  - Renal pain [Recovering/Resolving]
  - Limb injury [Recovered/Resolved]
